FAERS Safety Report 8586654-7 (Version None)
Quarter: 2012Q3

REPORT INFORMATION
  Report Type: 
  Country: None (occurrence: None)
  Receive Date: 20120810
  Receipt Date: 20120803
  Transmission Date: 20120928
  Serious: Yes (Hospitalization, Other)
  Sender: FDA-Public Use
  Company Number: AU-JNJFOC-20120710576

PATIENT
  Sex: Male
  Weight: 66.5 kg

DRUGS (6)
  1. REMICADE [Suspect]
     Dosage: 2ND INFUSION
     Route: 042
     Dates: start: 20120718
  2. ALL OTHER THERAPEUTICS [Concomitant]
     Indication: PREMEDICATION
     Route: 065
  3. REMICADE [Suspect]
     Indication: CROHN'S DISEASE
     Dosage: 1ST INFUSION
     Route: 042
  4. ACETAMINOPHEN [Concomitant]
     Indication: PREMEDICATION
     Route: 048
     Dates: start: 20120718
  5. LORATADINE [Concomitant]
     Indication: PREMEDICATION
     Route: 048
  6. HYDROCORTISONE [Concomitant]
     Indication: PREMEDICATION
     Route: 042

REACTIONS (9)
  - INFUSION RELATED REACTION [None]
  - CHEST PAIN [None]
  - TACHYCARDIA [None]
  - HYPERSENSITIVITY [None]
  - BACK PAIN [None]
  - HYPERTENSION [None]
  - HYPERHIDROSIS [None]
  - CHILLS [None]
  - RASH [None]
